FAERS Safety Report 23973945 (Version 2)
Quarter: 2024Q4

REPORT INFORMATION
  Report Type: Report from Study
  Country: GB (occurrence: GB)
  Receive Date: 20240613
  Receipt Date: 20241217
  Transmission Date: 20250115
  Serious: Yes (Hospitalization)
  Sender: AMGEN
  Company Number: GB-Vifor (International) Inc.-VIT-2024-05032

PATIENT
  Age: 50 Year
  Sex: Female
  Weight: 86.6 kg

DRUGS (37)
  1. AVACOPAN [Suspect]
     Active Substance: AVACOPAN
     Indication: Anti-neutrophil cytoplasmic antibody positive vasculitis
     Dosage: TWICE DAILY (BD)
     Route: 048
     Dates: start: 20240531, end: 20240602
  2. HYDROCORTISONE [Concomitant]
     Active Substance: HYDROCORTISONE
     Indication: Anti-neutrophil cytoplasmic antibody positive vasculitis
     Dosage: 10,MG,QD
     Route: 048
     Dates: start: 202405, end: 20240601
  3. HYDROCORTISONE [Concomitant]
     Active Substance: HYDROCORTISONE
     Dosage: 5,MG,BID
     Route: 048
     Dates: start: 202405, end: 20240601
  4. HYDROCORTISONE [Concomitant]
     Active Substance: HYDROCORTISONE
     Dosage: SINGLE IV INFUSION
     Route: 048
     Dates: start: 20240602
  5. HYDROCORTISONE [Concomitant]
     Active Substance: HYDROCORTISONE
     Dosage: 5 MG, QD COMPLETION OF PLANNED COURSE
     Route: 048
     Dates: start: 20240130, end: 20240130
  6. HYDROCORTISONE [Concomitant]
     Active Substance: HYDROCORTISONE
     Dosage: 15 MG, QD COMPLETION OF PLANNED COURSE
     Route: 048
     Dates: start: 20240131, end: 20240131
  7. HYDROCORTISONE [Concomitant]
     Active Substance: HYDROCORTISONE
     Dosage: 25 MG, QD COMPLETION OF PLANNED COURSE
     Route: 048
     Dates: start: 20240201, end: 20240201
  8. HYDROCORTISONE [Concomitant]
     Active Substance: HYDROCORTISONE
     Dosage: 40MG, QD COMPLETION OF PLANNED COURSE
     Route: 048
     Dates: start: 20240202, end: 20240203
  9. HYDROCORTISONE [Concomitant]
     Active Substance: HYDROCORTISONE
     Dosage: 20 MG, QD COMPLETION OF PLANNED COURSE
     Route: 048
     Dates: start: 20240205, end: 20240205
  10. HYDROCORTISONE [Concomitant]
     Active Substance: HYDROCORTISONE
     Dosage: 10 MG, QD COMPLETION OF PLANNED COURSE
     Route: 048
     Dates: start: 20240206
  11. HYDROCORTISONE [Concomitant]
     Active Substance: HYDROCORTISONE
     Dosage: 5 MG, BID
     Route: 048
     Dates: start: 20240206
  12. HYDROCORTISONE [Concomitant]
     Active Substance: HYDROCORTISONE
     Dosage: 5 MG, BID
     Route: 048
     Dates: start: 20240605
  13. RITUXIMAB [Concomitant]
     Active Substance: RITUXIMAB
     Indication: Anti-neutrophil cytoplasmic antibody positive vasculitis
     Dosage: TWO INFUSIONS IN TOT.
     Route: 042
     Dates: start: 20240423, end: 20240423
  14. METHYLPREDNISOLONE [Concomitant]
     Active Substance: METHYLPREDNISOLONE
     Indication: Anti-neutrophil cytoplasmic antibody positive vasculitis
     Dosage: SINGLE IV INFUSION
     Route: 042
     Dates: start: 20240131, end: 20240131
  15. METHYLPREDNISOLONE [Concomitant]
     Active Substance: METHYLPREDNISOLONE
     Dosage: SINGLE IV INFUSION
     Route: 042
     Dates: start: 20240203, end: 20240204
  16. METHYLPREDNISOLONE [Concomitant]
     Active Substance: METHYLPREDNISOLONE
     Dosage: SINGLE IV INFUSION
     Route: 042
     Dates: start: 20240423, end: 20240423
  17. METHYLPREDNISOLONE ACETATE [Concomitant]
     Active Substance: METHYLPREDNISOLONE ACETATE
     Indication: Anti-neutrophil cytoplasmic antibody positive vasculitis
     Dosage: 80,MG, EVERY 4 WEEK
     Route: 030
     Dates: start: 20170825, end: 202404
  18. METHOTREXATE [Concomitant]
     Active Substance: METHOTREXATE
     Indication: Anti-neutrophil cytoplasmic antibody positive vasculitis
     Dosage: 20,MG,QW
     Route: 058
     Dates: start: 20230807, end: 20240415
  19. PREDNISOLONE [Concomitant]
     Active Substance: PREDNISOLONE
     Indication: Anti-neutrophil cytoplasmic antibody positive vasculitis
     Dosage: COMPLETION OF PLANNED COURSE
     Route: 048
     Dates: start: 20240416, end: 202404
  20. PREDNISOLONE [Concomitant]
     Active Substance: PREDNISOLONE
     Dosage: 5 MG, QD
     Route: 048
     Dates: start: 20240906
  21. PREDNISOLONE [Concomitant]
     Active Substance: PREDNISOLONE
     Dosage: 10 MG, QD
     Route: 048
     Dates: start: 20240903, end: 20240905
  22. ASPIRIN [Concomitant]
     Active Substance: ASPIRIN
     Indication: Prophylaxis
     Dosage: 75,MG,QD
     Route: 048
     Dates: start: 20231206
  23. BUDESONIDE [Concomitant]
     Active Substance: BUDESONIDE
     Indication: Anti-neutrophil cytoplasmic antibody positive vasculitis
     Dosage: 1,MG,QD
     Dates: start: 20240226
  24. CALCIUM CARBONATE\CHOLECALCIFEROL [Concomitant]
     Active Substance: CALCIUM CARBONATE\CHOLECALCIFEROL
     Indication: Prophylaxis
     Dosage: 1.5 GR + 10 MCG
     Route: 048
     Dates: start: 20161205
  25. COTRIMOXAZOLE [Concomitant]
     Active Substance: SULFAMETHOXAZOLE\TRIMETHOPRIM
     Indication: Infection prophylaxis
     Dosage: 480,MG,TIW
     Route: 048
     Dates: start: 20240602
  26. DALTEPARIN [Concomitant]
     Active Substance: DALTEPARIN
     Indication: Prophylaxis
     Dosage: 5000,IU,QD
     Route: 058
     Dates: start: 20240602
  27. DERMOL [Concomitant]
     Active Substance: BENZALKONIUM CHLORIDE\CHLORHEXIDINE HYDROCHLORIDE\ISOPROPYL MYRISTATE\PARAFFIN
     Indication: Dry skin
     Dosage: 1,DF,QD
     Route: 061
     Dates: start: 20240220
  28. DOCUSATE [Concomitant]
     Active Substance: DOCUSATE
     Indication: Constipation
     Dosage: 100,MG,UNK
     Route: 048
     Dates: start: 20240401
  29. FOLIC ACID [Concomitant]
     Active Substance: FOLIC ACID
     Indication: Anaemia
     Dosage: 5,MG,QD
     Route: 048
     Dates: start: 20140708
  30. GABAPENTIN [Concomitant]
     Active Substance: GABAPENTIN
     Indication: Pain
     Dosage: 100,MG,BID
     Route: 048
     Dates: start: 20220408
  31. LANSOPRAZOLE [Concomitant]
     Active Substance: LANSOPRAZOLE
     Indication: Gastrointestinal disorder prophylaxis
     Dosage: 30,MG,QD
     Route: 048
     Dates: start: 20240208
  32. LEVOFLOXACIN [Concomitant]
     Active Substance: LEVOFLOXACIN
     Indication: Pneumonia
     Dosage: 500,MG,BID
     Route: 042
     Dates: start: 20240602, end: 20240603
  33. LEVOFLOXACIN [Concomitant]
     Active Substance: LEVOFLOXACIN
     Dosage: 500,MG,BID
     Route: 042
     Dates: start: 20240604
  34. AMLODIPINE [Concomitant]
     Active Substance: AMLODIPINE BESYLATE
     Indication: Hypertension
     Dosage: 5,MG,QD
     Route: 048
     Dates: start: 202405
  35. RAMIPRIL [Concomitant]
     Active Substance: RAMIPRIL
     Indication: Hypertension
     Dosage: 10,MG,QD
     Route: 048
     Dates: start: 20240326
  36. MIRTAZAPINE [Concomitant]
     Active Substance: MIRTAZAPINE
     Indication: Post-traumatic stress disorder
     Dosage: 45,MG,QD
     Route: 048
     Dates: start: 20211129
  37. HYDROXYCHLOROQUINE [Concomitant]
     Active Substance: HYDROXYCHLOROQUINE
     Indication: Anti-neutrophil cytoplasmic antibody positive vasculitis
     Dosage: 200 MG, QD
     Route: 048
     Dates: start: 20240726

REACTIONS (1)
  - Lower respiratory tract infection [Recovered/Resolved]

NARRATIVE: CASE EVENT DATE: 20240602
